FAERS Safety Report 15463770 (Version 1)
Quarter: 2018Q4

REPORT INFORMATION
  Report Type: Spontaneous
  Country: CA (occurrence: CA)
  Receive Date: 20181004
  Receipt Date: 20181004
  Transmission Date: 20190204
  Serious: Yes (Death, Other)
  Sender: FDA-Public Use
  Company Number: CA-PFIZER INC-2018396545

PATIENT
  Age: 64 Year
  Sex: Male

DRUGS (10)
  1. ACETAMINOPHEN. [Interacting]
     Active Substance: ACETAMINOPHEN
     Indication: PELVIC PAIN
     Dosage: 3 G, UNK
     Route: 065
  2. METHADONE [Interacting]
     Active Substance: METHADONE HYDROCHLORIDE
     Indication: BACK PAIN
  3. PREGABALIN. [Interacting]
     Active Substance: PREGABALIN
     Indication: BACK PAIN
  4. METHADONE [Interacting]
     Active Substance: METHADONE HYDROCHLORIDE
     Indication: PELVIC PAIN
     Dosage: 24 MG, UNK
     Route: 048
  5. PREGABALIN. [Interacting]
     Active Substance: PREGABALIN
     Indication: PELVIC PAIN
     Dosage: 150 MG, UNK
     Route: 065
  6. HYDROMORPHONE HYDROCHLORIDE. [Suspect]
     Active Substance: HYDROMORPHONE HYDROCHLORIDE
     Indication: PELVIC PAIN
     Dosage: 30 MG, UNK
     Route: 051
  7. ACETAMINOPHEN. [Interacting]
     Active Substance: ACETAMINOPHEN
     Indication: BACK PAIN
  8. DEXAMETHASONE. [Interacting]
     Active Substance: DEXAMETHASONE
     Indication: PELVIC PAIN
     Dosage: 16 MG, UNK
     Route: 048
  9. HYDROMORPHONE HYDROCHLORIDE. [Interacting]
     Active Substance: HYDROMORPHONE HYDROCHLORIDE
     Indication: BACK PAIN
     Dosage: UNK
     Route: 037
  10. DEXAMETHASONE. [Interacting]
     Active Substance: DEXAMETHASONE
     Indication: BACK PAIN
     Dosage: 0.75 MG, UNK
     Route: 051

REACTIONS (5)
  - Neoplasm malignant [Fatal]
  - Drug interaction [Fatal]
  - Delirium [Fatal]
  - Hallucination [Fatal]
  - Drug ineffective [Fatal]
